FAERS Safety Report 26043608 (Version 1)
Quarter: 2025Q4

REPORT INFORMATION
  Report Type: Spontaneous
  Country: CA (occurrence: CA)
  Receive Date: 20251113
  Receipt Date: 20251113
  Transmission Date: 20260118
  Serious: Yes (Other)
  Sender: BAUSCH AND LOMB
  Company Number: CA-BAUSCH-BH-2025-020148

PATIENT
  Age: 41 Year
  Sex: Male

DRUGS (24)
  1. TETRABENAZINE [Suspect]
     Active Substance: TETRABENAZINE
     Indication: Tardive dyskinesia
     Dosage: 6 ADMINISTRATIONS
     Route: 065
  2. TETRABENAZINE [Suspect]
     Active Substance: TETRABENAZINE
     Route: 065
  3. TETRABENAZINE [Suspect]
     Active Substance: TETRABENAZINE
     Dosage: 2 ADMINISTRATIONS
     Route: 065
  4. TETRABENAZINE [Suspect]
     Active Substance: TETRABENAZINE
     Route: 065
  5. TETRABENAZINE [Suspect]
     Active Substance: TETRABENAZINE
     Dosage: 5 ADMINISTRATIONS
     Route: 065
  6. TETRABENAZINE [Suspect]
     Active Substance: TETRABENAZINE
     Dosage: NOT SPECIFIED
     Route: 065
  7. TETRABENAZINE [Suspect]
     Active Substance: TETRABENAZINE
     Route: 065
  8. TETRABENAZINE [Suspect]
     Active Substance: TETRABENAZINE
     Dosage: 2 EVERY 1 DAYS (2 ADMINISTRATIONS)
     Route: 048
  9. TETRABENAZINE [Suspect]
     Active Substance: TETRABENAZINE
     Dosage: 2 EVERY 1 DAYS
     Route: 048
  10. PALIPERIDONE [Suspect]
     Active Substance: PALIPERIDONE
     Indication: Agitation
     Route: 065
  11. PALIPERIDONE [Suspect]
     Active Substance: PALIPERIDONE
     Route: 065
  12. PALIPERIDONE [Suspect]
     Active Substance: PALIPERIDONE
     Route: 065
  13. QUETIAPINE FUMARATE [Suspect]
     Active Substance: QUETIAPINE FUMARATE
     Indication: Sedation
     Route: 065
  14. QUETIAPINE FUMARATE [Suspect]
     Active Substance: QUETIAPINE FUMARATE
     Route: 065
  15. QUETIAPINE FUMARATE [Suspect]
     Active Substance: QUETIAPINE FUMARATE
     Route: 065
  16. QUETIAPINE FUMARATE [Suspect]
     Active Substance: QUETIAPINE FUMARATE
     Route: 065
  17. QUETIAPINE FUMARATE [Suspect]
     Active Substance: QUETIAPINE FUMARATE
     Route: 065
  18. QUETIAPINE FUMARATE [Suspect]
     Active Substance: QUETIAPINE FUMARATE
     Route: 065
  19. BENZTROPINE [Concomitant]
     Active Substance: BENZTROPINE
     Indication: Product used for unknown indication
     Route: 065
  20. BENZTROPINE [Concomitant]
     Active Substance: BENZTROPINE
     Route: 065
  21. BENZTROPINE [Concomitant]
     Active Substance: BENZTROPINE
     Dosage: 2 EVERY 1 DAYS
     Route: 048
  22. BENZTROPINE [Concomitant]
     Active Substance: BENZTROPINE
     Dosage: 1 EVERY 1 DAYS
     Route: 065
  23. VITAMIN B6 [Concomitant]
     Active Substance: PYRIDOXINE HYDROCHLORIDE
     Indication: Product used for unknown indication
     Dosage: NOT SPECIFIED
     Route: 065
  24. VITAMIN E [Concomitant]
     Active Substance: .ALPHA.-TOCOPHEROL
     Indication: Product used for unknown indication
     Dosage: NOT SPECIFIED
     Route: 065

REACTIONS (3)
  - Tardive dyskinesia [Not Recovered/Not Resolved]
  - Condition aggravated [Not Recovered/Not Resolved]
  - Drug ineffective [Not Recovered/Not Resolved]
